FAERS Safety Report 10443186 (Version 1)
Quarter: 2014Q3

REPORT INFORMATION
  Report Type: Spontaneous
  Country: GB (occurrence: GB)
  Receive Date: 20140909
  Receipt Date: 20140909
  Transmission Date: 20150326
  Serious: Yes (Hospitalization, Other)
  Sender: FDA-Public Use
  Company Number: PHHY2014GB110616

PATIENT
  Age: 89 Year
  Sex: Female

DRUGS (10)
  1. NAPROXEN. [Suspect]
     Active Substance: NAPROXEN
     Dosage: 250 MG, TID
     Route: 048
     Dates: start: 20120905, end: 20120916
  2. BISOPROLOL [Concomitant]
     Active Substance: BISOPROLOL
  3. COCODAMOL [Concomitant]
     Active Substance: ACETAMINOPHEN\CODEINE PHOSPHATE
     Dosage: CO-CODAMOL 8/500 CHANGED TO PARACETAMOL DURING ADMISSION.
  4. SIMVASTATIN. [Concomitant]
     Active Substance: SIMVASTATIN
  5. LISINOPRIL. [Suspect]
     Active Substance: LISINOPRIL
     Dosage: 10 MG, QD
     Route: 048
     Dates: end: 20120916
  6. TRIMETHOPRIM. [Suspect]
     Active Substance: TRIMETHOPRIM
     Dosage: 200 MG, BID
     Route: 048
     Dates: start: 20120913, end: 20120916
  7. CLOPIDOGREL [Concomitant]
     Active Substance: CLOPIDOGREL BISULFATE
     Dosage: 75 MG, QD
  8. FERROUS FUMARATE [Concomitant]
     Active Substance: FERROUS FUMARATE
     Dosage: 1 DF, BID
  9. RANITIDINE [Concomitant]
     Active Substance: RANITIDINE\RANITIDINE HYDROCHLORIDE
     Dosage: 150 MG, BID
  10. METFORMIN [Suspect]
     Active Substance: METFORMIN HYDROCHLORIDE

REACTIONS (3)
  - Confusional state [Recovered/Resolved]
  - Renal failure acute [Recovered/Resolved]
  - Blindness cortical [Recovered/Resolved]

NARRATIVE: CASE EVENT DATE: 20120916
